FAERS Safety Report 21830542 (Version 1)
Quarter: 2023Q1

REPORT INFORMATION
  Report Type: Spontaneous
  Country: US (occurrence: US)
  Receive Date: 20230106
  Receipt Date: 20230106
  Transmission Date: 20230418
  Serious: No
  Sender: FDA-Public Use
  Company Number: US-VIIV HEALTHCARE LIMITED-US2023000579

PATIENT
  Sex: Male

DRUGS (1)
  1. TRIUMEQ [Suspect]
     Active Substance: ABACAVIR SULFATE\DOLUTEGRAVIR SODIUM\LAMIVUDINE
     Indication: HIV infection
     Dosage: UNK UNK, QD (600-50-300MG ONCE DAILY)

REACTIONS (6)
  - Blood pressure increased [Unknown]
  - Epistaxis [Unknown]
  - Migraine [Unknown]
  - Abdominal pain upper [Unknown]
  - Stress [Unknown]
  - Product dose omission issue [Unknown]
